FAERS Safety Report 11285909 (Version 1)
Quarter: 2015Q3

REPORT INFORMATION
  Report Type: Report from Study
  Country: FR (occurrence: FR)
  Receive Date: 20150721
  Receipt Date: 20150721
  Transmission Date: 20151125
  Serious: Yes (Death, Other)
  Sender: FDA-Public Use
  Company Number: FR-BRISTOL-MYERS SQUIBB COMPANY-BMS-2015-040816

PATIENT
  Age: 72 Year
  Sex: Female
  Weight: 75 kg

DRUGS (1)
  1. NIVOLUMAB [Suspect]
     Active Substance: NIVOLUMAB
     Indication: MALIGNANT MELANOMA
     Dosage: 3 MG/KG, UNK
     Route: 065
     Dates: start: 20150527

REACTIONS (5)
  - Haemoglobin abnormal [Unknown]
  - Blood alkaline phosphatase increased [Unknown]
  - Alanine aminotransferase abnormal [Unknown]
  - Death [Fatal]
  - Blood sodium abnormal [Unknown]

NARRATIVE: CASE EVENT DATE: 20150526
